APPROVED DRUG PRODUCT: MAXZIDE
Active Ingredient: HYDROCHLOROTHIAZIDE; TRIAMTERENE
Strength: 50MG;75MG
Dosage Form/Route: TABLET;ORAL
Application: N019129 | Product #001 | TE Code: AB
Applicant: AUROBINDO PHARMA USA INC
Approved: Oct 22, 1984 | RLD: Yes | RS: Yes | Type: RX